FAERS Safety Report 18710892 (Version 1)
Quarter: 2021Q1

REPORT INFORMATION
  Report Type: Report from Study
  Country: GB (occurrence: GB)
  Receive Date: 20210107
  Receipt Date: 20210107
  Transmission Date: 20210419
  Serious: Yes (Hospitalization)
  Sender: FDA-Public Use
  Company Number: NVSC2021GB000921

PATIENT
  Sex: Female

DRUGS (1)
  1. HYRIMOZ [Suspect]
     Active Substance: ADALIMUMAB-ADAZ
     Indication: CROHN^S DISEASE
     Dosage: 1 DF, Q2W (40/0.8 MG/ML)
     Route: 065
     Dates: start: 20190722

REACTIONS (3)
  - Influenza [Unknown]
  - Product dose omission issue [Unknown]
  - SARS-CoV-2 test positive [Unknown]
